FAERS Safety Report 13753133 (Version 1)
Quarter: 2017Q3

REPORT INFORMATION
  Report Type: Report from Study
  Country: US (occurrence: US)
  Receive Date: 20170714
  Receipt Date: 20170714
  Transmission Date: 20171127
  Serious: Yes (Hospitalization)
  Sender: FDA-Public Use
  Company Number: US-ASTRAZENECA-2017SE69078

PATIENT
  Age: 22268 Day
  Sex: Female
  Weight: 67.4 kg

DRUGS (18)
  1. MEDI4736 [Suspect]
     Active Substance: DURVALUMAB
     Indication: NEOPLASM MALIGNANT
     Route: 042
     Dates: start: 20170124
  2. AZD6244 [Suspect]
     Active Substance: SELUMETINIB
     Indication: NEOPLASM MALIGNANT
     Route: 048
     Dates: start: 20170118, end: 20170123
  3. CALTRATE [Concomitant]
     Active Substance: CALCIUM CARBONATE
     Indication: SUPPLEMENTATION THERAPY
     Dosage: 600 MG
     Route: 048
     Dates: start: 199606
  4. SYNTHROID [Concomitant]
     Active Substance: LEVOTHYROXINE SODIUM
     Indication: HYPOTHYROIDISM
     Dosage: 50 MG
     Route: 048
     Dates: start: 201706
  5. MEDI4736 [Suspect]
     Active Substance: DURVALUMAB
     Indication: NEOPLASM MALIGNANT
     Route: 042
     Dates: start: 20170228, end: 20170306
  6. AZD6244 [Suspect]
     Active Substance: SELUMETINIB
     Indication: NEOPLASM MALIGNANT
     Route: 048
     Dates: start: 20170117, end: 20170117
  7. AZD6244 [Suspect]
     Active Substance: SELUMETINIB
     Indication: NEOPLASM MALIGNANT
     Route: 048
     Dates: start: 20170131, end: 20170206
  8. GEODON [Concomitant]
     Active Substance: ZIPRASIDONE HYDROCHLORIDE\ZIPRASIDONE MESYLATE
     Indication: AFFECTIVE DISORDER
     Dosage: 80 MG
     Dates: start: 200405
  9. LOPERAMIDE HYDROCHLORIDE. [Concomitant]
     Active Substance: LOPERAMIDE HYDROCHLORIDE
     Indication: DIARRHOEA
     Dosage: 2 MG AS REQUIRED
     Route: 048
     Dates: start: 20170206
  10. MEDI4736 [Suspect]
     Active Substance: DURVALUMAB
     Indication: NEOPLASM MALIGNANT
     Route: 042
     Dates: start: 20170131, end: 20170206
  11. MEDI4736 [Suspect]
     Active Substance: DURVALUMAB
     Indication: NEOPLASM MALIGNANT
     Route: 042
     Dates: start: 20170314, end: 20170320
  12. AZD6244 [Suspect]
     Active Substance: SELUMETINIB
     Indication: NEOPLASM MALIGNANT
     Route: 048
     Dates: start: 20170214, end: 20170220
  13. AZD6244 [Suspect]
     Active Substance: SELUMETINIB
     Indication: NEOPLASM MALIGNANT
     Route: 048
     Dates: start: 20170228, end: 20170306
  14. AZD6244 [Suspect]
     Active Substance: SELUMETINIB
     Indication: NEOPLASM MALIGNANT
     Route: 048
     Dates: start: 20170314, end: 20170320
  15. AZD6244 [Suspect]
     Active Substance: SELUMETINIB
     Indication: NEOPLASM MALIGNANT
     Route: 048
     Dates: start: 20170328, end: 20170403
  16. CENTRUM [Concomitant]
     Active Substance: VITAMINS
     Indication: SUPPLEMENTATION THERAPY
     Route: 048
     Dates: start: 1985
  17. MEDI4736 [Suspect]
     Active Substance: DURVALUMAB
     Indication: NEOPLASM MALIGNANT
     Route: 042
     Dates: start: 20170214, end: 20170220
  18. MEDI4736 [Suspect]
     Active Substance: DURVALUMAB
     Indication: NEOPLASM MALIGNANT
     Route: 042
     Dates: start: 20170328, end: 20170403

REACTIONS (1)
  - Bacteraemia [Recovering/Resolving]

NARRATIVE: CASE EVENT DATE: 20170628
